FAERS Safety Report 24271009 (Version 1)
Quarter: 2024Q3

REPORT INFORMATION
  Report Type: Spontaneous
  Country: DE (occurrence: DE)
  Receive Date: 20240831
  Receipt Date: 20240831
  Transmission Date: 20241016
  Serious: Yes (Death, Other)
  Sender: AUROBINDO
  Company Number: DE-SANDOZ-SDZ2024DE072897

PATIENT
  Age: 52 Year
  Sex: Female

DRUGS (1)
  1. BISOPROLOL [Suspect]
     Active Substance: BISOPROLOL\BISOPROLOL FUMARATE
     Indication: Product used for unknown indication
     Dosage: UNKNOWN
     Route: 065

REACTIONS (4)
  - Drowning [Fatal]
  - Hypoglycaemia [Fatal]
  - Toxicity to various agents [Fatal]
  - Unadjusted dose administered [Unknown]
